FAERS Safety Report 21681313 (Version 1)
Quarter: 2022Q4

REPORT INFORMATION
  Report Type: Spontaneous
  Country: CH (occurrence: CH)
  Receive Date: 20221205
  Receipt Date: 20221205
  Transmission Date: 20230113
  Serious: Yes (Other)
  Sender: FDA-Public Use
  Company Number: None

PATIENT
  Age: 7 Decade
  Sex: Male
  Weight: 68 kg

DRUGS (5)
  1. ERLEADA [Suspect]
     Active Substance: APALUTAMIDE
     Indication: Hormone-dependent prostate cancer
     Dosage: ERLEADA  (APALUTAMID) ORALE EINNAHME 4X60 MG /TAG AB DEM 02.05.2022 BIS AUF WEITERES
     Route: 048
     Dates: start: 20220502
  2. LEUPROLIDE ACETATE [Concomitant]
     Active Substance: LEUPROLIDE ACETATE
     Indication: Hormone-dependent prostate cancer
     Dosage: LUCRIN  DEPOT (LEUPRORELIN ACETATE) INTRAMUSKULARE APPLIKATION 11.25 MG ALLE 3 MONATE SEIT DEM 22...
     Route: 030
     Dates: start: 20220322
  3. INDERAL [Concomitant]
     Active Substance: PROPRANOLOL HYDROCHLORIDE
     Indication: Extrasystoles
     Dosage: INDERAL  (PROPRANOLOL) 40 MG 2X/TAG SEIT DEM 01.06.2011
     Route: 048
     Dates: start: 20110601
  4. CHOLECALCIFEROL [Concomitant]
     Active Substance: CHOLECALCIFEROL
     Indication: Osteoporosis
     Dosage: LUVIT  D3 (COLECALCIFEROL) 1.5 ML 1X/WOCHE SEIT DEM 12.01.2017
     Route: 048
     Dates: start: 20170112
  5. CHOLECALCIFEROL [Concomitant]
     Active Substance: CHOLECALCIFEROL
     Indication: Extrasystoles

REACTIONS (1)
  - Restless legs syndrome [Recovering/Resolving]

NARRATIVE: CASE EVENT DATE: 20220526
